FAERS Safety Report 7288919-8 (Version None)
Quarter: 2011Q1

REPORT INFORMATION
  Report Type: 
  Country: None (occurrence: None)
  Receive Date: 20110211
  Receipt Date: 20110202
  Transmission Date: 20110831
  Serious: Yes (Hospitalization)
  Sender: FDA-Public Use
  Company Number: PHHO2008DE10026

PATIENT
  Sex: Male
  Weight: 86.5 kg

DRUGS (4)
  1. MYFORTIC [Suspect]
     Dosage: 360 MG, BID2SDO
     Route: 048
     Dates: start: 20080520, end: 20090113
  2. METHYLPREDNISOLONE [Concomitant]
     Indication: RENAL TRANSPLANT
     Dosage: 4 MG DAILY
  3. CYCLOSPORINE [Suspect]
     Indication: RENAL TRANSPLANT
     Dosage: 150 MG, BID
     Route: 048
     Dates: start: 20080520
  4. NO TREATMENT RECEIVED [Suspect]
     Indication: RENAL TRANSPLANT

REACTIONS (17)
  - KIDNEY TRANSPLANT REJECTION [None]
  - BLOOD CREATININE INCREASED [None]
  - HYPOAESTHESIA [None]
  - RENAL INFARCT [None]
  - SPINAL COLUMN STENOSIS [None]
  - INTERVERTEBRAL DISC PROTRUSION [None]
  - NEPHRECTOMY [None]
  - URINARY RETENTION [None]
  - BLADDER CATHETERISATION [None]
  - SURGERY [None]
  - DRUG ADMINISTRATION ERROR [None]
  - ASCITES [None]
  - PYREXIA [None]
  - BLADDER CATHETER REMOVAL [None]
  - OSTEONECROSIS [None]
  - MUSCULAR WEAKNESS [None]
  - URINARY TRACT INFECTION [None]
